FAERS Safety Report 4627526-X (Version None)
Quarter: 2005Q2

REPORT INFORMATION
  Report Type: 
  Country: None (occurrence: None)
  Receive Date: 20050405
  Receipt Date: 20050318
  Transmission Date: 20051028
  Serious: Yes (Other)
  Sender: FDA-Public Use
  Company Number: EM2005-0097

PATIENT
  Age: 32 Year
  Sex: Female

DRUGS (1)
  1. PROLEUKIN [Suspect]
     Indication: MALIGNANT MELANOMA
     Dosage: 0.6 MIU/KG,

REACTIONS (1)
  - AUTOIMMUNE HEPATITIS [None]
